FAERS Safety Report 23343273 (Version 1)
Quarter: 2023Q4

REPORT INFORMATION
  Report Type: Spontaneous
  Country: JP (occurrence: JP)
  Receive Date: 20231227
  Receipt Date: 20231227
  Transmission Date: 20240109
  Serious: Yes (Hospitalization)
  Sender: FDA-Public Use
  Company Number: JP-Eisai-202311937_FYC_P_1

PATIENT
  Age: 75 Year
  Sex: Female

DRUGS (2)
  1. FYCOMPA [Suspect]
     Active Substance: PERAMPANEL
     Indication: Epilepsy
     Route: 048
     Dates: start: 20211201, end: 20231216
  2. FYCOMPA [Suspect]
     Active Substance: PERAMPANEL
     Dosage: DOSE UNKNOWN

REACTIONS (4)
  - Altered state of consciousness [Recovered/Resolved]
  - Urinary retention [Recovering/Resolving]
  - Hallucination [Recovering/Resolving]
  - Delusion [Recovering/Resolving]

NARRATIVE: CASE EVENT DATE: 20231122
